FAERS Safety Report 8608858-7 (Version None)
Quarter: 2012Q3

REPORT INFORMATION
  Report Type: 
  Country: None (occurrence: None)
  Receive Date: 20120821
  Receipt Date: 20120814
  Transmission Date: 20120928
  Serious: Yes (Hospitalization, Other)
  Sender: FDA-Public Use
  Company Number: US-PFIZER INC-2012164337

PATIENT
  Age: 42 Year
  Sex: Female
  Weight: 56.689 kg

DRUGS (5)
  1. LYRICA [Suspect]
     Indication: HYPOAESTHESIA
     Dosage: 150 MG, 3X/DAY
     Route: 048
  2. LYRICA [Suspect]
     Indication: OEDEMA PERIPHERAL
     Dosage: 100 MG, 2X/DAY
     Route: 048
  3. LYRICA [Suspect]
     Indication: BURNING SENSATION
     Dosage: 100 MG, 3X/DAY
     Route: 048
  4. LYRICA [Suspect]
     Indication: NEURALGIA
  5. LYRICA [Suspect]
     Indication: NERVE INJURY

REACTIONS (6)
  - RENAL PAIN [None]
  - OEDEMA PERIPHERAL [None]
  - ANAEMIA [None]
  - VITAMIN B12 DECREASED [None]
  - DRUG INEFFECTIVE [None]
  - BURNING SENSATION [None]
